FAERS Safety Report 6458961-5 (Version None)
Quarter: 2009Q4

REPORT INFORMATION
  Report Type: 
  Country: None (occurrence: None)
  Receive Date: 20091127
  Receipt Date: 20091116
  Transmission Date: 20100525
  Serious: Yes (Death, Life-Threatening)
  Sender: FDA-Public Use
  Company Number: DE-ELI_LILLY_AND_COMPANY-DE200911004077

PATIENT
  Age: 87 Year
  Sex: Male

DRUGS (13)
  1. ZYPREXA [Suspect]
     Indication: DEMENTIA ALZHEIMER'S TYPE
     Dosage: 2.5 MG, UNKNOWN
     Route: 048
     Dates: start: 20080123, end: 20080101
  2. ZYPREXA [Suspect]
     Dosage: 10 MG, UNKNOWN
     Route: 048
     Dates: start: 20080101, end: 20080201
  3. ZYPREXA [Suspect]
     Dosage: 12.5 MG, UNKNOWN
     Route: 048
     Dates: start: 20080202, end: 20080203
  4. ZYPREXA [Suspect]
     Dosage: 15 MG, UNKNOWN
     Route: 048
     Dates: start: 20080204, end: 20080207
  5. ZYPREXA [Suspect]
     Dosage: 12.5 MG, UNKNOWN
     Route: 048
     Dates: start: 20080208, end: 20080212
  6. ASPIRIN [Concomitant]
     Dosage: 100 MG, UNKNOWN
     Route: 065
     Dates: end: 20080213
  7. CORANGIN [Concomitant]
     Dosage: 80 MG, UNKNOWN
     Route: 065
     Dates: end: 20080213
  8. CORVATON [Concomitant]
     Dosage: 8 MG, UNKNOWN
     Route: 065
     Dates: end: 20080213
  9. DOMINAL [Concomitant]
     Dosage: 40 MG, UNKNOWN
     Route: 065
  10. DOMINAL [Concomitant]
     Dosage: 80 MG, UNKNOWN
     Route: 065
  11. DOMINAL [Concomitant]
     Dosage: 120 MG, UNKNOWN
     Route: 065
  12. DOMINAL [Concomitant]
     Dosage: 200 MG, UNKNOWN
     Route: 065
  13. DOMINAL [Concomitant]
     Dosage: 120 MG, UNKNOWN
     Route: 065
     Dates: end: 20080213

REACTIONS (5)
  - DELIRIUM [None]
  - OFF LABEL USE [None]
  - PNEUMONIA [None]
  - PYREXIA [None]
  - RESTLESSNESS [None]
